FAERS Safety Report 9748185 (Version 1)
Quarter: 2013Q4

REPORT INFORMATION
  Report Type: Spontaneous
  Country: US (occurrence: US)
  Receive Date: 20131212
  Receipt Date: 20131212
  Transmission Date: 20140711
  Serious: No
  Sender: FDA-Public Use
  Company Number: US-PFIZER INC-2013350975

PATIENT
  Age: 37 Year
  Sex: Male
  Weight: 65.76 kg

DRUGS (1)
  1. VIAGRA [Suspect]
     Indication: ERECTILE DYSFUNCTION
     Dosage: UNK
     Dates: start: 20131206

REACTIONS (2)
  - Accommodation disorder [Not Recovered/Not Resolved]
  - Vision blurred [Not Recovered/Not Resolved]
